FAERS Safety Report 8389298-5 (Version None)
Quarter: 2012Q2

REPORT INFORMATION
  Report Type: 
  Country: None (occurrence: None)
  Receive Date: 20120528
  Receipt Date: 20120523
  Transmission Date: 20120825
  Serious: No
  Sender: FDA-Public Use
  Company Number: PHEH2012US000522

PATIENT
  Sex: Female
  Weight: 90.703 kg

DRUGS (6)
  1. IBUPROFEN [Concomitant]
  2. PRAVASTATIN [Concomitant]
  3. METFORMIN HCL [Concomitant]
  4. CLARITIN [Concomitant]
  5. COLACE [Concomitant]
  6. TASIGNA [Suspect]
     Indication: ACUTE MYELOID LEUKAEMIA
     Dosage: 300 MG, Q12H
     Route: 048
     Dates: start: 20100720

REACTIONS (2)
  - MIGRAINE [None]
  - MUSCLE SPASMS [None]
